FAERS Safety Report 8522429 (Version 2)
Quarter: 2014Q1

REPORT INFORMATION
  Report Type: Spontaneous
  Country: US (occurrence: US)
  Receive Date: 20120419
  Receipt Date: 20140224
  Transmission Date: 20141002
  Serious: Yes (Other)
  Sender: FDA-Public Use
  Company Number: US-PFIZER INC-2012096412

PATIENT
  Sex: Female

DRUGS (1)
  1. LYRICA [Suspect]
     Dosage: UNK
     Route: 048
     Dates: start: 20120411

REACTIONS (4)
  - Loss of consciousness [Unknown]
  - Somnambulism [Unknown]
  - Feeling abnormal [Unknown]
  - Feeling abnormal [Unknown]
